FAERS Safety Report 4644814-1 (Version None)
Quarter: 2005Q2

REPORT INFORMATION
  Report Type: 
  Country: None (occurrence: None)
  Receive Date: 20050422
  Receipt Date: 20050411
  Transmission Date: 20051028
  Serious: Yes (Hospitalization)
  Sender: FDA-Public Use
  Company Number: 213707

PATIENT

DRUGS (3)
  1. MABTHERA (RITUXIMAB) CONC FOR SOLUTION FOR INFUSION [Suspect]
     Indication: CHRONIC LYMPHOCYTIC LEUKAEMIA
     Dosage: 562.5 MG, INTRAVENOUS
     Route: 042
     Dates: start: 20050228, end: 20050301
  2. CYCLOPHOSPHAMIDE [Suspect]
     Indication: CHRONIC LYMPHOCYTIC LEUKAEMIA
     Dosage: 375 MG, INTRAVENOUS
     Route: 042
     Dates: start: 20050301, end: 20050303
  3. FLUDARABINE PHOSPHATE [Suspect]
     Indication: CHRONIC LYMPHOCYTIC LEUKAEMIA
     Dosage: 37.5 MG, INTRAVENOUS
     Route: 042
     Dates: start: 20050301, end: 20050303

REACTIONS (4)
  - CRYSTAL URINE PRESENT [None]
  - RENAL DISORDER [None]
  - URINARY TRACT OBSTRUCTION [None]
  - WHITE BLOOD CELL COUNT INCREASED [None]
